FAERS Safety Report 7919127-2 (Version None)
Quarter: 2011Q4

REPORT INFORMATION
  Report Type: 
  Country: None (occurrence: None)
  Receive Date: 20111116
  Receipt Date: 20111029
  Transmission Date: 20120403
  Serious: Yes (Hospitalization, Other)
  Sender: FDA-Public Use
  Company Number: PHHY2011FR96015

PATIENT
  Age: 36 Year
  Sex: Female

DRUGS (11)
  1. CYCLOSPORINE [Suspect]
     Indication: RENAL TRANSPLANT
     Dates: start: 20040101
  2. RITUXIMAB [Concomitant]
     Indication: IMMUNOSUPPRESSION
     Dosage: UNK UKN, UNK
  3. AZATHIOPRINE [Concomitant]
  4. IRBESARTAN [Concomitant]
     Indication: PROTEINURIA
  5. BASILIXIMAB [Suspect]
     Indication: RENAL TRANSPLANT
  6. MYCOPHENOLATE MOFETIL [Concomitant]
     Indication: RENAL TRANSPLANT
     Dates: start: 20040101
  7. CORTICOSTEROIDS [Concomitant]
     Indication: IMMUNOSUPPRESSION
  8. IRBESARTAN [Concomitant]
     Indication: HYPERTENSION
  9. THYMOGLOBULIN [Concomitant]
     Indication: RENAL TRANSPLANT
  10. MYCOPHENOLATE SODIUM [Concomitant]
     Indication: RENAL TRANSPLANT
  11. CYCLOPHOSPHAMIDE [Concomitant]

REACTIONS (12)
  - RENAL IMPAIRMENT [None]
  - BLOOD CREATININE INCREASED [None]
  - NEPHRITIC SYNDROME [None]
  - THROMBOTIC MICROANGIOPATHY [None]
  - GASTROINTESTINAL DISORDER [None]
  - RENAL FAILURE ACUTE [None]
  - GLOMERULONEPHRITIS MEMBRANOPROLIFERATIVE [None]
  - RENAL DISORDER [None]
  - HYPERTENSION [None]
  - RENAL TUBULAR DISORDER [None]
  - PROTEINURIA [None]
  - HAEMATURIA [None]
